FAERS Safety Report 5786129-4 (Version None)
Quarter: 2008Q2

REPORT INFORMATION
  Report Type: 
  Country: None (occurrence: None)
  Receive Date: 20080624
  Receipt Date: 20080617
  Transmission Date: 20081010
  Serious: Yes (Life-Threatening, Hospitalization, Congenital Anomaly)
  Sender: FDA-Public Use
  Company Number: A0630323A

PATIENT
  Sex: Female
  Weight: 1.6 kg

DRUGS (21)
  1. PAXIL [Suspect]
     Indication: DRUG USE FOR UNKNOWN INDICATION
     Dosage: 40MG PER DAY
  2. TRAZODONE HCL [Concomitant]
     Indication: SLEEP DISORDER
     Dosage: 50MG AS REQUIRED
     Dates: start: 20010301, end: 20030501
  3. CELEXA [Concomitant]
     Indication: DEPRESSION
     Dates: start: 20010101
  4. SONATA [Concomitant]
     Indication: SLEEP DISORDER
     Dates: start: 20010301, end: 20020101
  5. ALPRAZOLAM [Concomitant]
     Indication: ANXIETY
     Dosage: .5MG AS REQUIRED
     Dates: start: 20010301, end: 20030101
  6. IMITREX [Concomitant]
     Indication: MIGRAINE
     Dates: start: 20010301, end: 20020401
  7. MIGQUIN [Concomitant]
     Dates: start: 20010901
  8. PHENERGAN HCL [Concomitant]
     Indication: NAUSEA
     Dates: start: 20011001
  9. DEPAKOTE [Concomitant]
     Dates: start: 20011101, end: 20020101
  10. DIAZEPAM [Concomitant]
     Dates: start: 20011101
  11. ALBUTEROL [Concomitant]
     Indication: ASTHMA
     Dates: start: 20020301
  12. SKELAXIN [Concomitant]
     Dates: start: 20020301
  13. HYDROCODONE WITH APAP [Concomitant]
     Dates: start: 20020301
  14. VITAMIN TAB [Concomitant]
     Dates: start: 20020501, end: 20020801
  15. CEPHALEXIN [Concomitant]
     Dates: start: 20020601
  16. PROPRANOLOL HCL [Concomitant]
     Indication: MIGRAINE
     Dates: start: 20020801
  17. DESERIL [Concomitant]
  18. MAGNESIUM SULFATE [Concomitant]
  19. DEXAMETHASONE [Concomitant]
  20. DESERIL [Concomitant]
  21. MORPHINE SULFATE [Concomitant]
     Dates: start: 20020410

REACTIONS (22)
  - ABNORMAL BEHAVIOUR [None]
  - AGGRESSION [None]
  - ANAEMIA [None]
  - ANGER [None]
  - ANXIETY [None]
  - APNOEA [None]
  - APNOEIC ATTACK [None]
  - ATRIAL SEPTAL DEFECT [None]
  - BEREAVEMENT REACTION [None]
  - DRUG EXPOSURE DURING PREGNANCY [None]
  - DYSPNOEA [None]
  - EMOTIONAL DISORDER [None]
  - EMOTIONAL DISTRESS [None]
  - FOETAL DISTRESS SYNDROME [None]
  - HYPERBILIRUBINAEMIA [None]
  - PAIN [None]
  - PREMATURE BABY [None]
  - REGRESSIVE BEHAVIOUR [None]
  - RESPIRATORY DISTRESS [None]
  - SHOCK [None]
  - SPEECH DISORDER [None]
  - VENTRICULAR SEPTAL DEFECT [None]
